FAERS Safety Report 17431097 (Version 1)
Quarter: 2020Q1

REPORT INFORMATION
  Report Type: Spontaneous
  Country: US (occurrence: US)
  Receive Date: 20200218
  Receipt Date: 20200218
  Transmission Date: 20200409
  Serious: Yes (Other)
  Sender: FDA-Public Use
  Company Number: US-ASTELLAS-2020US005398

PATIENT
  Age: 56 Year
  Sex: Male
  Weight: 136 kg

DRUGS (1)
  1. MYRBETRIQ [Suspect]
     Active Substance: MIRABEGRON
     Indication: URINARY INCONTINENCE
     Route: 065
     Dates: start: 202001

REACTIONS (9)
  - Urinary retention [Unknown]
  - Dry mouth [Unknown]
  - Hyperhidrosis [Unknown]
  - Therapeutic product effect incomplete [Unknown]
  - Pain [Unknown]
  - Lacrimation increased [Unknown]
  - Rhinorrhoea [Unknown]
  - Cough [Unknown]
  - Abdominal infection [Unknown]
